FAERS Safety Report 9397178 (Version 1)
Quarter: 2013Q3

REPORT INFORMATION
  Report Type: Report from Study
  Country: US (occurrence: US)
  Receive Date: 20130712
  Receipt Date: 20130712
  Transmission Date: 20140515
  Serious: Yes (Hospitalization)
  Sender: FDA-Public Use
  Company Number: PHEH2013US014650

PATIENT
  Sex: Female
  Weight: 122.45 kg

DRUGS (15)
  1. TASIGNA [Suspect]
     Dosage: 150 MG, BID
  2. CYMBALTA [Concomitant]
     Dosage: 20 MG, UNK
  3. PHENERGAN                          /00404701/ [Concomitant]
     Dosage: 25 MG, UNK
  4. ULTRAM                             /01573601/ [Concomitant]
     Dosage: 50 MG, UNK
  5. ZYRTEC [Concomitant]
     Dosage: 5 MG, UNK
  6. SYNTHROID [Concomitant]
     Dosage: 25 UNK, UNK
  7. DIOVAN HCT [Concomitant]
  8. CARAFATE [Concomitant]
     Dosage: 1 G, UNK
  9. VALIUM [Concomitant]
     Dosage: 2 MG, UNK
  10. ZOFRAN [Concomitant]
     Dosage: 4 MG, UNK
  11. FLONASPRAY [Concomitant]
     Dosage: 0.05 UNK, UNK
  12. MOBIC [Concomitant]
     Dosage: 7.5 MG, UNK
  13. FLEXERIL [Concomitant]
     Dosage: 5 MG, UNK
  14. MULTIVITAMINS [Concomitant]
  15. HYDROCODONE [Concomitant]

REACTIONS (6)
  - Dehydration [Unknown]
  - Diarrhoea [Unknown]
  - Pain [Unknown]
  - Sinusitis [Unknown]
  - Nausea [Unknown]
  - Vomiting [Unknown]
